FAERS Safety Report 9690775 (Version 3)
Quarter: 2013Q4

REPORT INFORMATION
  Report Type: Spontaneous
  Country: JP (occurrence: JP)
  Receive Date: 20131115
  Receipt Date: 20131205
  Transmission Date: 20140711
  Serious: Yes (Hospitalization)
  Sender: FDA-Public Use
  Company Number: JP-PFIZER INC-2013324309

PATIENT
  Age: 72 Year
  Sex: Female

DRUGS (1)
  1. CABASER [Suspect]
     Indication: PARKINSON^S DISEASE
     Dosage: 1 MG, 3X/DAY
     Route: 048

REACTIONS (1)
  - Fall [Recovered/Resolved]
